FAERS Safety Report 8010447-2 (Version None)
Quarter: 2011Q4

REPORT INFORMATION
  Report Type: 
  Country: None (occurrence: None)
  Receive Date: 20111228
  Receipt Date: 20111216
  Transmission Date: 20120403
  Serious: No
  Sender: FDA-Public Use
  Company Number: US-B.I. PHARMACEUTICALS,INC./RIDGEFIELD-2011-BP-27987BP

PATIENT
  Sex: Female

DRUGS (8)
  1. SPIRIVA [Suspect]
     Indication: BRONCHITIS CHRONIC
     Dosage: 18 MCG
     Route: 055
     Dates: start: 20110901
  2. SIMVASTATIN [Concomitant]
     Indication: BLOOD CHOLESTEROL INCREASED
     Route: 048
  3. NIFEDIPINE [Concomitant]
     Indication: HYPERTENSION
     Route: 048
  4. VITAMIN D [Concomitant]
     Indication: SUPPLEMENTATION THERAPY
     Route: 048
  5. IBUPROFEN [Concomitant]
     Indication: ANALGESIC THERAPY
     Route: 048
  6. ASPIRIN [Concomitant]
     Indication: PROPHYLAXIS
     Route: 048
  7. SOTALOL HCL [Concomitant]
     Indication: ARRHYTHMIA
     Route: 048
  8. LOVAZA [Concomitant]
     Indication: SUPPLEMENTATION THERAPY
     Route: 048

REACTIONS (1)
  - DYSGEUSIA [None]
